FAERS Safety Report 8025033-8 (Version None)
Quarter: 2012Q1

REPORT INFORMATION
  Report Type: 
  Country: None (occurrence: None)
  Receive Date: 20120105
  Receipt Date: 20120104
  Transmission Date: 20120608
  Serious: Yes (Hospitalization)
  Sender: FDA-Public Use
  Company Number: AU-MERCK-1201USA00298

PATIENT
  Age: 62 Year
  Sex: Male

DRUGS (2)
  1. JANUVIA [Suspect]
     Route: 048
  2. JANUVIA [Suspect]
     Route: 048

REACTIONS (2)
  - SEPSIS [None]
  - PNEUMONIA [None]
